FAERS Safety Report 10930526 (Version 1)
Quarter: 2015Q1

REPORT INFORMATION
  Report Type: Spontaneous
  Country: US (occurrence: US)
  Receive Date: 20150319
  Receipt Date: 20150319
  Transmission Date: 20150721
  Serious: No
  Sender: FDA-Public Use
  Company Number: US-GLAXOSMITHKLINE-US2015004277

PATIENT
  Age: 78 Year

DRUGS (2)
  1. ABREVA [Suspect]
     Active Substance: DOCOSANOL
     Indication: ORAL HERPES
     Dosage: UNK
     Dates: start: 20150103, end: 20150111
  2. ABREVA [Suspect]
     Active Substance: DOCOSANOL

REACTIONS (3)
  - Drug ineffective [Unknown]
  - Eating disorder [Not Recovered/Not Resolved]
  - Application site pain [Not Recovered/Not Resolved]
